FAERS Safety Report 7353010-9 (Version None)
Quarter: 2011Q1

REPORT INFORMATION
  Report Type: 
  Country: None (occurrence: None)
  Receive Date: 20110315
  Receipt Date: 20101130
  Transmission Date: 20110831
  Serious: Yes (Hospitalization)
  Sender: FDA-Public Use
  Company Number: A0898252A

PATIENT
  Age: 49 Year
  Sex: Female

DRUGS (1)
  1. AVANDIA [Suspect]
     Indication: DIABETES MELLITUS
     Dosage: 8MG TWICE PER DAY
     Route: 048
     Dates: start: 20051001, end: 20080901

REACTIONS (4)
  - PAIN IN EXTREMITY [None]
  - TRAUMATIC LUNG INJURY [None]
  - CORONARY ARTERY BYPASS [None]
  - OXYGEN SUPPLEMENTATION [None]
